FAERS Safety Report 7428780-1 (Version None)
Quarter: 2011Q2

REPORT INFORMATION
  Report Type: 
  Country: None (occurrence: None)
  Receive Date: 20110415
  Receipt Date: 20110415
  Transmission Date: 20111010
  Serious: No
  Sender: FDA-Public Use
  Company Number: None

PATIENT
  Age: 23 Year
  Sex: Female
  Weight: 72.5755 kg

DRUGS (1)
  1. SINGULAIR [Suspect]
     Indication: ASTHMA
     Dosage: 10 MG AT BEDTIME PO
     Route: 048
     Dates: start: 20110411, end: 20110413

REACTIONS (3)
  - DECREASED ACTIVITY [None]
  - SUICIDAL IDEATION [None]
  - DEPRESSION [None]
